FAERS Safety Report 6943992-9 (Version None)
Quarter: 2010Q3

REPORT INFORMATION
  Report Type: 
  Country: None (occurrence: None)
  Receive Date: 20100827
  Receipt Date: 20100823
  Transmission Date: 20110219
  Serious: Yes (Other)
  Sender: FDA-Public Use
  Company Number: US-ASTRAZENECA-2006UW07956

PATIENT
  Age: 50 Year
  Sex: Female
  Weight: 90.7 kg

DRUGS (30)
  1. SEROQUEL [Suspect]
     Indication: SCHIZOPHRENIA
     Route: 048
     Dates: start: 19980101, end: 20041201
  2. SEROQUEL [Suspect]
     Indication: BIPOLAR DISORDER
     Route: 048
     Dates: start: 19980101, end: 20041201
  3. SEROQUEL [Suspect]
     Indication: DEPRESSION
     Route: 048
     Dates: start: 19980101, end: 20041201
  4. SEROQUEL [Suspect]
     Indication: SLEEP DISORDER
     Route: 048
     Dates: start: 19980101, end: 20041201
  5. SEROQUEL [Suspect]
     Indication: PSYCHOTIC DISORDER
     Route: 048
     Dates: start: 19980101, end: 20041201
  6. SEROQUEL [Suspect]
     Indication: ANXIETY
     Route: 048
     Dates: start: 19980101, end: 20041201
  7. SEROQUEL [Suspect]
     Dosage: 25 MG - 100 MG
     Route: 048
     Dates: start: 20021015, end: 20040503
  8. SEROQUEL [Suspect]
     Dosage: 25 MG - 100 MG
     Route: 048
     Dates: start: 20021015, end: 20040503
  9. SEROQUEL [Suspect]
     Dosage: 25 MG - 100 MG
     Route: 048
     Dates: start: 20021015, end: 20040503
  10. SEROQUEL [Suspect]
     Dosage: 25 MG - 100 MG
     Route: 048
     Dates: start: 20021015, end: 20040503
  11. SEROQUEL [Suspect]
     Dosage: 25 MG - 100 MG
     Route: 048
     Dates: start: 20021015, end: 20040503
  12. SEROQUEL [Suspect]
     Dosage: 25 MG - 100 MG
     Route: 048
     Dates: start: 20021015, end: 20040503
  13. ABILIFY [Concomitant]
     Dates: start: 20020101
  14. CLOZARIL [Concomitant]
     Dates: start: 20020101
  15. THORAZINE [Concomitant]
  16. AMITRIPTYLINE HCL [Concomitant]
  17. LEXAPRO [Concomitant]
  18. XANAX [Concomitant]
     Dosage: 2-10 MG
  19. PREDNISONE [Concomitant]
     Indication: RHEUMATOID ARTHRITIS
     Dosage: 5 MG - 10 MG
     Route: 048
     Dates: start: 20020219
  20. PREDNISONE [Concomitant]
     Indication: OSTEOARTHRITIS
     Dosage: 5 MG - 10 MG
     Route: 048
     Dates: start: 20020219
  21. VIOXX [Concomitant]
     Dates: start: 20020501
  22. CELEXA [Concomitant]
     Dosage: 10 MG - 20 MG
     Dates: start: 20020205
  23. DEPAKOTE [Concomitant]
     Indication: DEPRESSION
     Dosage: 250 MG AT MORNING AND 500 MG AT NIGHT
     Dates: start: 20020501
  24. LIPITOR [Concomitant]
     Dosage: 10 MG - 20 MG
     Dates: start: 20030926
  25. COUMADIN [Concomitant]
     Dates: start: 20020209
  26. METHOTREXATE [Concomitant]
     Dates: start: 20020501
  27. ACCUPRIL [Concomitant]
     Dates: start: 20020511
  28. LORAZEPAM [Concomitant]
     Dosage: 0.5 MG ONE TABLET EVERY 6-8 HOURS
     Route: 048
     Dates: start: 20040502
  29. AVANDAMET [Concomitant]
     Route: 048
     Dates: start: 20040502
  30. PRILOSEC [Concomitant]
     Dates: start: 20021106

REACTIONS (7)
  - BLOOD CHOLESTEROL INCREASED [None]
  - BLOOD TRIGLYCERIDES INCREASED [None]
  - HYPERGLYCAEMIA [None]
  - HYPERLIPIDAEMIA [None]
  - NEUROPATHY PERIPHERAL [None]
  - OBESITY [None]
  - TYPE 2 DIABETES MELLITUS [None]
